FAERS Safety Report 8406348-8 (Version None)
Quarter: 2012Q2

REPORT INFORMATION
  Report Type: 
  Country: None (occurrence: None)
  Receive Date: 20120529
  Receipt Date: 20060504
  Transmission Date: 20120825
  Serious: Yes (Hospitalization)
  Sender: FDA-Public Use
  Company Number: 15691-USA-06-1297

PATIENT
  Age: 54 Year
  Sex: Male

DRUGS (9)
  1. RAMIPRIL AND HYDROCHLOROTHIAZIDE (RAMIPRIL) [Concomitant]
  2. TOLVAPTAN (TOLVAPTAN(V4.1)) 30MG [Suspect]
     Indication: CARDIAC FAILURE CONGESTIVE
     Dosage: 30MG, QD, ORAL
     Route: 048
     Dates: start: 20050920, end: 20060424
  3. CARVEDILOL [Concomitant]
  4. LANTUS [Concomitant]
  5. SPIRONOLACTONE [Concomitant]
  6. AMIODARONE HCL [Concomitant]
  7. TORSEMIDE [Concomitant]
  8. PHENPROCOUMIN [Concomitant]
  9. NOVORAPID [Concomitant]

REACTIONS (6)
  - GENERAL PHYSICAL HEALTH DETERIORATION [None]
  - BLOOD GLUCOSE INCREASED [None]
  - CARDIAC FAILURE [None]
  - CONDITION AGGRAVATED [None]
  - STASIS DERMATITIS [None]
  - GAMMA-GLUTAMYLTRANSFERASE INCREASED [None]
